FAERS Safety Report 21090039 (Version 70)
Quarter: 2024Q3

REPORT INFORMATION
  Report Type: Report from Study
  Country: US (occurrence: US)
  Receive Date: 20220715
  Receipt Date: 20240927
  Transmission Date: 20241016
  Serious: Yes (Hospitalization, Other)
  Sender: TAKEDA
  Company Number: US-TAKEDA-2020TUS059591

PATIENT
  Age: 7 Year
  Sex: Male
  Weight: 32 kg

DRUGS (22)
  1. IDURSULFASE [Suspect]
     Active Substance: IDURSULFASE
     Indication: Mucopolysaccharidosis II
     Dosage: 12 MILLIGRAM, 1/WEEK
     Route: 042
     Dates: start: 20200616
  2. IDURSULFASE [Suspect]
     Active Substance: IDURSULFASE
     Indication: Mucopolysaccharidosis I
     Dosage: 18 MILLIGRAM, 1/WEEK
     Route: 042
     Dates: start: 20200618
  3. VALTOCO [Concomitant]
     Active Substance: DIAZEPAM
  4. VITAMIN C [Concomitant]
     Active Substance: ASCORBIC ACID
     Dosage: UNK
     Route: 065
  5. ACETAMINOPHEN [Concomitant]
     Active Substance: ACETAMINOPHEN
     Dosage: UNK
     Route: 048
  6. GABAPENTIN [Concomitant]
     Active Substance: GABAPENTIN
     Dosage: UNK
     Route: 065
  7. ALBUTEROL SULFATE [Concomitant]
     Active Substance: ALBUTEROL SULFATE
     Dosage: UNK
     Route: 065
  8. FLUTICASONE PROPIONATE [Concomitant]
     Active Substance: FLUTICASONE PROPIONATE
     Dosage: UNK
     Route: 065
  9. Culturelle for Kids [Concomitant]
     Dosage: UNK
     Route: 065
  10. LEVETIRACETAM [Concomitant]
     Active Substance: LEVETIRACETAM
     Dosage: UNK
     Route: 065
  11. HEPARIN [Concomitant]
     Active Substance: HEPARIN SODIUM
     Dosage: UNK
     Route: 065
  12. DIPHENHYDRAMINE HYDROCHLORIDE [Concomitant]
     Active Substance: DIPHENHYDRAMINE HYDROCHLORIDE
     Dosage: UNK
     Route: 065
  13. EPINEPHRINE [Concomitant]
     Active Substance: EPINEPHRINE
     Dosage: UNK
     Route: 065
  14. SODIUM CHLORIDE [Concomitant]
     Active Substance: SODIUM CHLORIDE
     Dosage: UNK
     Route: 065
  15. HYDROCORTISONE [Concomitant]
     Active Substance: HYDROCORTISONE\HYDROCORTISONE ACETATE
     Dosage: UNK
     Route: 065
  16. SODIUM CHLORIDE [Concomitant]
     Active Substance: SODIUM CHLORIDE
     Dosage: UNK
     Route: 065
  17. LIDOCAINE [Concomitant]
     Active Substance: LIDOCAINE
     Dosage: UNK
     Route: 065
  18. FAMOTIDINE [Concomitant]
     Active Substance: FAMOTIDINE
     Dosage: UNK
     Route: 065
  19. CANNABIDIOL\HERBALS [Concomitant]
     Active Substance: CANNABIDIOL\HERBALS
     Dosage: UNK
     Route: 065
  20. HERBALS [Concomitant]
     Active Substance: HERBALS
     Dosage: UNK
     Route: 065
  21. LORATADINE [Concomitant]
     Active Substance: LORATADINE
     Dosage: UNK
     Route: 065
  22. CETIRIZINE HCL [Concomitant]
     Active Substance: CETIRIZINE HYDROCHLORIDE
     Dosage: UNK
     Route: 065

REACTIONS (94)
  - Partial seizures [Unknown]
  - Device related sepsis [Unknown]
  - Sepsis [Unknown]
  - Enterovirus infection [Recovered/Resolved]
  - Post procedural infection [Unknown]
  - COVID-19 [Unknown]
  - Retching [Recovered/Resolved]
  - Toe walking [Not Recovered/Not Resolved]
  - Muscular weakness [Unknown]
  - Tendonitis [Not Recovered/Not Resolved]
  - Rhinovirus infection [Recovered/Resolved]
  - Gastritis viral [Recovered/Resolved]
  - Complex regional pain syndrome [Unknown]
  - Streptococcal infection [Unknown]
  - Viral infection [Unknown]
  - Dermatitis contact [Unknown]
  - Bronchiolitis [Unknown]
  - Neuropathy peripheral [Not Recovered/Not Resolved]
  - Otitis media [Recovering/Resolving]
  - Staphylococcal infection [Unknown]
  - Generalised tonic-clonic seizure [Recovered/Resolved]
  - Tympanic membrane perforation [Recovering/Resolving]
  - Adenovirus infection [Recovering/Resolving]
  - Seizure [Recovered/Resolved]
  - Respiratory distress [Unknown]
  - Pyrexia [Unknown]
  - Infusion site bruising [Unknown]
  - Infusion site extravasation [Unknown]
  - Catheter site swelling [Recovered/Resolved]
  - Gait inability [Not Recovered/Not Resolved]
  - Skin abrasion [Unknown]
  - Catheter site warmth [Unknown]
  - Catheter site erythema [Unknown]
  - Poor venous access [Unknown]
  - Malaise [Unknown]
  - Nasopharyngitis [Unknown]
  - Urticaria papular [Unknown]
  - Eye contusion [Unknown]
  - Asthenia [Not Recovered/Not Resolved]
  - Petechiae [Unknown]
  - Nasal pruritus [Unknown]
  - Nasal congestion [Unknown]
  - Musculoskeletal stiffness [Recovering/Resolving]
  - Rhinorrhoea [Unknown]
  - Tympanic membrane perforation [Unknown]
  - Lethargy [Unknown]
  - Pain in extremity [Unknown]
  - Weight increased [Unknown]
  - Peripheral coldness [Unknown]
  - Arthropod bite [Unknown]
  - Tooth loss [Unknown]
  - Decreased appetite [Unknown]
  - Nerve compression [Unknown]
  - Peripheral swelling [Unknown]
  - Agitation [Unknown]
  - Weight bearing difficulty [Not Recovered/Not Resolved]
  - Skin discolouration [Unknown]
  - Abnormal loss of weight [Unknown]
  - Constipation [Unknown]
  - Faeces soft [Unknown]
  - Gastrointestinal viral infection [Recovered/Resolved]
  - Mobility decreased [Not Recovered/Not Resolved]
  - Eyelid skin dryness [Unknown]
  - Inability to crawl [Unknown]
  - Infusion site haemorrhage [Recovered/Resolved]
  - Post procedural complication [Not Recovered/Not Resolved]
  - Middle ear effusion [Unknown]
  - Discomfort [Unknown]
  - Restless legs syndrome [Unknown]
  - Restlessness [Unknown]
  - Limb discomfort [Unknown]
  - Rash macular [Not Recovered/Not Resolved]
  - Erythema infectiosum [Unknown]
  - Muscle injury [Unknown]
  - Dyskinesia [Unknown]
  - Complication associated with device [Unknown]
  - Weight decreased [Unknown]
  - Crying [Unknown]
  - Macule [Unknown]
  - Product dose omission issue [Unknown]
  - Inappropriate schedule of product administration [Unknown]
  - Product use in unapproved indication [Unknown]
  - Device issue [Unknown]
  - Rhinitis [Not Recovered/Not Resolved]
  - Productive cough [Unknown]
  - Hypersensitivity [Unknown]
  - Ear infection [Recovered/Resolved]
  - Fatigue [Unknown]
  - Chills [Unknown]
  - Diarrhoea [Not Recovered/Not Resolved]
  - Dyspnoea [Unknown]
  - Vomiting [Unknown]
  - Erythema [Unknown]
  - Rash [Not Recovered/Not Resolved]

NARRATIVE: CASE EVENT DATE: 20200618
